FAERS Safety Report 21010247 (Version 3)
Quarter: 2022Q3

REPORT INFORMATION
  Report Type: Spontaneous
  Country: US (occurrence: US)
  Receive Date: 20220627
  Receipt Date: 20220705
  Transmission Date: 20221027
  Serious: Yes (Other)
  Sender: FDA-Public Use
  Company Number: US-PFIZER INC-202200895276

PATIENT
  Age: 80 Year
  Sex: Female
  Weight: 78.47 kg

DRUGS (1)
  1. PAXLOVID [Suspect]
     Active Substance: NIRMATRELVIR\RITONAVIR
     Indication: COVID-19 treatment
     Dosage: 1 PINK TAB AND 1 WHITE TABLET TWICE A DAY FOR FIVE DAYS
     Dates: start: 20220622

REACTIONS (5)
  - Hypertension [Unknown]
  - Fibrin D dimer increased [Unknown]
  - Feeling abnormal [Unknown]
  - Anxiety [Unknown]
  - Vomiting [Unknown]

NARRATIVE: CASE EVENT DATE: 20220625
